FAERS Safety Report 6677090-9 (Version None)
Quarter: 2010Q2

REPORT INFORMATION
  Report Type: 
  Country: None (occurrence: None)
  Receive Date: 20100412
  Receipt Date: 20100322
  Transmission Date: 20101027
  Serious: No
  Sender: FDA-Public Use
  Company Number: US-BAYER-201018034NA

PATIENT
  Age: 61 Year
  Sex: Male

DRUGS (1)
  1. MAGNEVIST [Suspect]
     Indication: TINNITUS
     Dosage: TOTAL DAILY DOSE: 5 ML
     Dates: start: 20100322, end: 20100322

REACTIONS (2)
  - ERYTHEMA [None]
  - SKIN WARM [None]
